FAERS Safety Report 11298472 (Version 1)
Quarter: 2015Q3

REPORT INFORMATION
  Report Type: Spontaneous
  Country: US (occurrence: US)
  Receive Date: 20150722
  Receipt Date: 20150722
  Transmission Date: 20151125
  Serious: No
  Sender: FDA-Public Use
  Company Number: US-ELI_LILLY_AND_COMPANY-US201007006656

PATIENT
  Sex: Female

DRUGS (5)
  1. HUMATROPE [Suspect]
     Active Substance: SOMATROPIN
     Indication: DWARFISM
     Dosage: UNK, UNK
  2. POTASSIUM [Concomitant]
     Active Substance: POTASSIUM
  3. HUMATROPE [Suspect]
     Active Substance: SOMATROPIN
     Dosage: UNK, UNK
  4. HUMATROPE [Suspect]
     Active Substance: SOMATROPIN
     Dosage: 0.4 MG, QD
  5. LASIX [Concomitant]
     Active Substance: FUROSEMIDE

REACTIONS (8)
  - Hypothalamo-pituitary disorder [Unknown]
  - Intentional product use issue [Unknown]
  - Drug dose omission [Unknown]
  - Dry mouth [Not Recovered/Not Resolved]
  - Thyroid disorder [Unknown]
  - Malaise [Unknown]
  - Incorrect drug dosage form administered [Unknown]
  - Incorrect dose administered [Unknown]
